FAERS Safety Report 23508521 (Version 2)
Quarter: 2024Q1

REPORT INFORMATION
  Report Type: Spontaneous
  Country: BE (occurrence: BE)
  Receive Date: 20240209
  Receipt Date: 20240308
  Transmission Date: 20240409
  Serious: Yes (Hospitalization, Other)
  Sender: FDA-Public Use
  Company Number: BE-ROCHE-2882515

PATIENT
  Age: 73 Year
  Sex: Female
  Weight: 79.1 kg

DRUGS (76)
  1. ATEZOLIZUMAB [Suspect]
     Active Substance: ATEZOLIZUMAB
     Indication: Small cell lung cancer extensive stage
     Dosage: 1200 MG, (RECEIVED BEFORE SIGNING THE INFORMED CONSENT)
     Route: 042
     Dates: start: 20210715
  2. ATEZOLIZUMAB [Suspect]
     Active Substance: ATEZOLIZUMAB
     Dosage: 1200 MG, (VISIT 1)
     Route: 042
     Dates: start: 20210804
  3. ATEZOLIZUMAB [Suspect]
     Active Substance: ATEZOLIZUMAB
     Indication: Non-small cell lung cancer
     Dosage: UNK
     Route: 041
  4. CARBOPLATIN [Suspect]
     Active Substance: CARBOPLATIN
     Dosage: 351 MG
     Route: 065
     Dates: start: 20210804
  5. CARBOPLATIN [Suspect]
     Active Substance: CARBOPLATIN
     Indication: Small cell lung cancer extensive stage
     Dosage: 375 MG
     Route: 065
     Dates: start: 20210715
  6. CARBOPLATIN [Suspect]
     Active Substance: CARBOPLATIN
     Indication: Non-small cell lung cancer
     Dosage: UNK
     Route: 065
  7. ETOPOSIDE [Suspect]
     Active Substance: ETOPOSIDE
     Indication: Small cell lung cancer extensive stage
     Dosage: 194 MG
     Route: 042
     Dates: start: 20210715
  8. ETOPOSIDE [Suspect]
     Active Substance: ETOPOSIDE
     Dosage: 196 MG
     Route: 042
     Dates: start: 20210804
  9. ETOPOSIDE [Suspect]
     Active Substance: ETOPOSIDE
     Indication: Non-small cell lung cancer
     Dosage: UNK
     Route: 048
  10. AKYNZEO [Concomitant]
     Indication: Product used for unknown indication
     Dosage: UNK, QMO
     Route: 065
     Dates: start: 20210715, end: 20210915
  11. ENALAPRIL MALEATE [Concomitant]
     Active Substance: ENALAPRIL MALEATE
     Indication: Product used for unknown indication
     Route: 065
     Dates: start: 20230330
  12. ENALAPRIL MALEATE [Concomitant]
     Active Substance: ENALAPRIL MALEATE
     Route: 065
     Dates: start: 20230330
  13. ENALAPRIL MALEATE [Concomitant]
     Active Substance: ENALAPRIL MALEATE
     Route: 065
     Dates: start: 20230330
  14. ALDACTONE [Concomitant]
     Active Substance: SPIRONOLACTONE
     Indication: Product used for unknown indication
     Dosage: UNK UNK, QD
     Route: 065
     Dates: start: 20230330
  15. AMOCLANE [Concomitant]
     Indication: Product used for unknown indication
     Dosage: QD
     Route: 065
     Dates: start: 20210728
  16. ASPIRIN [Concomitant]
     Active Substance: ASPIRIN
     Indication: Product used for unknown indication
     Dosage: QD
     Route: 065
     Dates: start: 20210927, end: 20210927
  17. AVELOX [Concomitant]
     Active Substance: MOXIFLOXACIN HYDROCHLORIDE
     Indication: Product used for unknown indication
     Dosage: UNK UNK, QD
     Route: 065
     Dates: start: 20211117, end: 20211121
  18. BILASTINE [Concomitant]
     Active Substance: BILASTINE
     Dosage: UNK UNK, QD
     Route: 065
     Dates: start: 202110, end: 202306
  19. BILASTINE [Concomitant]
     Active Substance: BILASTINE
     Indication: Prophylaxis
     Dosage: UNK
     Route: 065
     Dates: start: 20210916
  20. BISOPROLOL [Concomitant]
     Active Substance: BISOPROLOL\BISOPROLOL FUMARATE
     Indication: Product used for unknown indication
     Dosage: UNK, QD
     Route: 065
  21. CARVEDILOL [Concomitant]
     Active Substance: CARVEDILOL
     Dosage: UNK
     Route: 065
     Dates: start: 20230330
  22. CARVEDILOL [Concomitant]
     Active Substance: CARVEDILOL
     Indication: Product used for unknown indication
     Dosage: UNK, (0.5 DAY)
     Route: 065
     Dates: start: 20230330
  23. CARVEDILOL [Concomitant]
     Active Substance: CARVEDILOL
     Route: 065
     Dates: start: 20230330
  24. CARVEDILOL [Concomitant]
     Active Substance: CARVEDILOL
     Route: 065
     Dates: start: 20230330
  25. CARVEDILOL [Concomitant]
     Active Substance: CARVEDILOL
     Route: 065
     Dates: start: 20230330
  26. CARVEDILOL [Concomitant]
     Active Substance: CARVEDILOL
     Route: 065
     Dates: start: 20230330
  27. CARVEDILOL [Concomitant]
     Active Substance: CARVEDILOL
     Route: 065
     Dates: start: 20230330
  28. 3M CAVILON ANTIFUNGAL [Concomitant]
     Active Substance: MICONAZOLE NITRATE
     Dosage: QD
     Route: 065
     Dates: start: 20210916, end: 202109
  29. 3M CAVILON ANTIFUNGAL [Concomitant]
     Active Substance: MICONAZOLE NITRATE
     Dosage: QD
     Route: 065
     Dates: start: 20210916, end: 202109
  30. 3M CAVILON ANTIFUNGAL [Concomitant]
     Active Substance: MICONAZOLE NITRATE
     Dosage: QD
     Route: 065
     Dates: start: 20210916, end: 202109
  31. 3M CAVILON ANTIFUNGAL [Concomitant]
     Active Substance: MICONAZOLE NITRATE
     Dosage: QD
     Route: 065
     Dates: start: 20210916, end: 202109
  32. 3M CAVILON ANTIFUNGAL [Concomitant]
     Active Substance: MICONAZOLE NITRATE
     Dosage: QD
     Route: 065
     Dates: start: 20210916, end: 202109
  33. 3M CAVILON ANTIFUNGAL [Concomitant]
     Active Substance: MICONAZOLE NITRATE
     Dosage: QD
     Route: 065
     Dates: start: 20210916, end: 202109
  34. 3M CAVILON ANTIFUNGAL [Concomitant]
     Active Substance: MICONAZOLE NITRATE
     Indication: Product used for unknown indication
     Dosage: UNK, QD
     Route: 065
     Dates: start: 20210916, end: 202109
  35. CEFTAZIDIME [Concomitant]
     Active Substance: CEFTAZIDIME
     Indication: Product used for unknown indication
     Dosage: UNK, QD
     Route: 065
     Dates: start: 20210726, end: 20210728
  36. SODIUM CHLORIDE [Concomitant]
     Active Substance: SODIUM CHLORIDE
     Indication: Product used for unknown indication
     Dosage: QD
     Route: 065
     Dates: start: 20210729, end: 20210730
  37. ENALAPRIL [Concomitant]
     Active Substance: ENALAPRIL
     Indication: Product used for unknown indication
     Dosage: UNK, (0.5 DAY)
     Route: 065
     Dates: start: 20230330
  38. FUROSEMIDE [Concomitant]
     Active Substance: FUROSEMIDE
     Indication: Product used for unknown indication
     Dosage: UNK UNK, QD
     Route: 065
  39. CEFTAZIDIME [Concomitant]
     Active Substance: CEFTAZIDIME
     Indication: Product used for unknown indication
     Dosage: QD
     Route: 065
     Dates: start: 20210726, end: 20210728
  40. BECLOMETHASONE DIPROPIONATE\FORMOTEROL FUMARATE [Concomitant]
     Active Substance: BECLOMETHASONE DIPROPIONATE\FORMOTEROL FUMARATE
     Dosage: UNK
     Route: 065
     Dates: start: 20210725
  41. BECLOMETHASONE DIPROPIONATE\FORMOTEROL FUMARATE [Concomitant]
     Active Substance: BECLOMETHASONE DIPROPIONATE\FORMOTEROL FUMARATE
     Dosage: UNK, 2X/DAY
     Route: 065
     Dates: start: 20210715
  42. BECLOMETHASONE DIPROPIONATE\FORMOTEROL FUMARATE [Concomitant]
     Active Substance: BECLOMETHASONE DIPROPIONATE\FORMOTEROL FUMARATE
     Indication: Product used for unknown indication
     Dosage: UNK,0.5 DAY
     Route: 065
  43. POTASSIUM CHLORIDE [Concomitant]
     Active Substance: POTASSIUM CHLORIDE
     Indication: Product used for unknown indication
     Dosage: QD
     Route: 065
     Dates: start: 20210729, end: 20210730
  44. LASIX [Concomitant]
     Active Substance: FUROSEMIDE
     Indication: Product used for unknown indication
     Dosage: QD
     Route: 065
  45. POLYETHYLENE GLYCOL 3350\POTASSIUM CHLORIDE\SODIUM BICARBONATE\SODIUM [Concomitant]
     Active Substance: POLYETHYLENE GLYCOL 3350\POTASSIUM CHLORIDE\SODIUM BICARBONATE\SODIUM CHLORIDE
     Indication: Product used for unknown indication
     Dosage: UNK, QD
     Route: 065
  46. ALIZAPRIDE HYDROCHLORIDE [Concomitant]
     Active Substance: ALIZAPRIDE HYDROCHLORIDE
     Indication: Product used for unknown indication
     Dosage: UNK
     Route: 065
     Dates: start: 20210717, end: 20210717
  47. Magnecaps energy [Concomitant]
     Indication: Product used for unknown indication
     Dosage: QD
     Route: 065
     Dates: start: 20210716, end: 20210925
  48. MAGNESIUM [Concomitant]
     Active Substance: MAGNESIUM
     Indication: Product used for unknown indication
     Dosage: UNK, QD
     Route: 065
     Dates: start: 20210716, end: 20210925
  49. METHYLPREDNISOLONE [Concomitant]
     Active Substance: METHYLPREDNISOLONE
     Indication: Product used for unknown indication
     Dosage: UNK, MONTHLY
     Route: 065
     Dates: start: 20210715, end: 20210915
  50. NEULASTA [Concomitant]
     Active Substance: PEGFILGRASTIM
     Indication: Product used for unknown indication
     Dosage: UNK
     Route: 065
     Dates: start: 20210719, end: 20210917
  51. PERINDOPRIL [Concomitant]
     Active Substance: PERINDOPRIL
     Indication: Product used for unknown indication
     Dosage: UNK, QD
     Route: 065
  52. PLASMALYTE A [Concomitant]
     Dosage: QD
     Route: 065
     Dates: start: 20210726, end: 20210727
  53. PLASMALYTE A [Concomitant]
     Dosage: QD
     Route: 065
     Dates: start: 20210726, end: 20210727
  54. PLASMALYTE A [Concomitant]
     Dosage: QD
     Route: 065
     Dates: start: 20210726, end: 20210727
  55. PLASMALYTE A [Concomitant]
     Dosage: QD
     Route: 065
     Dates: start: 20210726, end: 20210727
  56. PLASMALYTE A [Concomitant]
     Dosage: QD
     Route: 065
     Dates: start: 20210726, end: 20210727
  57. PLASMALYTE A [Concomitant]
     Dosage: QD
     Route: 065
     Dates: start: 20210726, end: 20210727
  58. PLASMALYTE A [Concomitant]
     Indication: Product used for unknown indication
     Dosage: UNK, QD
     Route: 065
     Dates: start: 20210726, end: 20210727
  59. POTASSIUM CHLORIDE [Concomitant]
     Active Substance: POTASSIUM CHLORIDE
     Indication: Product used for unknown indication
     Dosage: UNK, QD
     Route: 065
     Dates: start: 20210729, end: 20210730
  60. POTASSIUM CHLORIDE [Concomitant]
     Active Substance: POTASSIUM CHLORIDE
     Dosage: UNK
     Route: 065
     Dates: start: 20210716, end: 20210925
  61. PRAVASTATIN [Concomitant]
     Active Substance: PRAVASTATIN
     Indication: Product used for unknown indication
     Dosage: UNK UNK, QD
     Route: 065
  62. PERINDOPRIL [Concomitant]
     Active Substance: PERINDOPRIL
     Indication: Product used for unknown indication
     Dosage: QD
     Route: 065
  63. PERINDOPRIL [Concomitant]
     Active Substance: PERINDOPRIL
     Dosage: QD
     Route: 065
  64. PERINDOPRIL [Concomitant]
     Active Substance: PERINDOPRIL
     Dosage: QD
     Route: 065
  65. SODIUM CHLORIDE [Concomitant]
     Active Substance: SODIUM CHLORIDE
     Indication: Product used for unknown indication
     Dosage: UNK, QD
     Route: 065
     Dates: start: 20210729, end: 20210730
  66. LEVOFLOXACIN [Concomitant]
     Active Substance: LEVOFLOXACIN
     Indication: Product used for unknown indication
     Dosage: UNK, QD
     Route: 065
     Dates: start: 20210723, end: 20210726
  67. ULTRA K [Concomitant]
     Indication: Product used for unknown indication
     Dosage: UNK, QD
     Route: 065
     Dates: start: 20210728
  68. CHOLECALCIFEROL [Concomitant]
     Active Substance: CHOLECALCIFEROL
     Dosage: QD
     Route: 065
     Dates: start: 20210716
  69. CHOLECALCIFEROL [Concomitant]
     Active Substance: CHOLECALCIFEROL
     Dosage: QD
     Route: 065
     Dates: start: 20210716
  70. CHOLECALCIFEROL [Concomitant]
     Active Substance: CHOLECALCIFEROL
     Dosage: QD
     Route: 065
     Dates: start: 20210716
  71. CHOLECALCIFEROL [Concomitant]
     Active Substance: CHOLECALCIFEROL
     Dosage: QD
     Route: 065
     Dates: start: 20210716
  72. CHOLECALCIFEROL [Concomitant]
     Active Substance: CHOLECALCIFEROL
     Dosage: QD
     Route: 065
     Dates: start: 20210716
  73. CHOLECALCIFEROL [Concomitant]
     Active Substance: CHOLECALCIFEROL
     Dosage: QD
     Route: 065
     Dates: start: 20210716
  74. CHOLECALCIFEROL [Concomitant]
     Active Substance: CHOLECALCIFEROL
     Indication: Product used for unknown indication
     Dosage: UNK, QD
     Route: 065
  75. CHOLECALCIFEROL [Concomitant]
     Active Substance: CHOLECALCIFEROL
     Dosage: UNK, QD
     Route: 065
     Dates: start: 20210716
  76. ZOCOR [Concomitant]
     Active Substance: SIMVASTATIN
     Indication: Product used for unknown indication
     Dosage: UNK UNK, QD
     Route: 065
     Dates: start: 20210804

REACTIONS (14)
  - Neutropenia [Recovered/Resolved]
  - Systemic inflammatory response syndrome [Recovered/Resolved]
  - Neutropenia [Recovered/Resolved]
  - Hypokalaemia [Recovered/Resolved]
  - Hypokalaemia [Recovered/Resolved]
  - Acute kidney injury [Recovered/Resolved]
  - Haematoma [Recovered/Resolved]
  - Hypothyroidism [Recovered/Resolved]
  - Fall [Unknown]
  - C-reactive protein increased [Recovered/Resolved]
  - Diarrhoea [Recovered/Resolved]
  - Oedema peripheral [Recovered/Resolved]
  - C-reactive protein increased [Recovered/Resolved]
  - Decreased appetite [Not Recovered/Not Resolved]

NARRATIVE: CASE EVENT DATE: 20210717
